FAERS Safety Report 5288692-9 (Version None)
Quarter: 2007Q2

REPORT INFORMATION
  Report Type: 
  Country: None (occurrence: None)
  Receive Date: 20070405
  Receipt Date: 20070328
  Transmission Date: 20071010
  Serious: Yes (Life-Threatening, Hospitalization)
  Sender: FDA-Public Use
  Company Number: 2007GB00599

PATIENT
  Age: 50 Year
  Sex: Male

DRUGS (4)
  1. ATENOLOL [Suspect]
     Indication: ANGINA PECTORIS
     Route: 048
  2. AMLODIPINE [Suspect]
     Indication: ANGINA PECTORIS
  3. ARTHROTEC [Suspect]
     Indication: OSTEOARTHRITIS
     Route: 065
  4. DICLOFENAC SODIUM [Suspect]
     Indication: OSTEOARTHRITIS

REACTIONS (12)
  - ACCIDENTAL OVERDOSE [None]
  - ATRIOVENTRICULAR BLOCK COMPLETE [None]
  - BACK PAIN [None]
  - CIRCULATORY COLLAPSE [None]
  - DIZZINESS [None]
  - DRUG TOXICITY [None]
  - ELECTROCARDIOGRAM ABNORMAL [None]
  - HYPOTENSION [None]
  - METABOLIC ACIDOSIS [None]
  - MYOCARDIAL INFARCTION [None]
  - NEPHROPATHY TOXIC [None]
  - RENAL FAILURE ACUTE [None]
